FAERS Safety Report 9860647 (Version 1)
Quarter: 2014Q1

REPORT INFORMATION
  Report Type: Spontaneous
  Country: US (occurrence: US)
  Receive Date: 20140202
  Receipt Date: 20140202
  Transmission Date: 20141002
  Serious: No
  Sender: FDA-Public Use
  Company Number: US-ALLERGAN-1300015US

PATIENT
  Age: 72 Year
  Sex: Female

DRUGS (6)
  1. BOTOX COSMETIC [Suspect]
     Indication: SKIN WRINKLING
     Dosage: 80 UNITS, SINGLE
     Route: 030
     Dates: start: 20120928, end: 20120928
  2. BOTOX COSMETIC [Suspect]
     Indication: SKIN WRINKLING
     Dosage: 80 UNITS, SINGLE
     Route: 030
     Dates: start: 20120926, end: 20120926
  3. BOTOX COSMETIC [Suspect]
     Indication: SKIN WRINKLING
  4. BOTOX COSMETIC [Suspect]
     Indication: SKIN WRINKLING
  5. BOTOX COSMETIC [Suspect]
     Indication: SKIN WRINKLING
  6. BOTOX COSMETIC [Suspect]
     Indication: SKIN WRINKLING

REACTIONS (8)
  - Mass [Recovered/Resolved]
  - Myalgia [Unknown]
  - Neck pain [Not Recovered/Not Resolved]
  - Back pain [Unknown]
  - Scleral hyperaemia [Recovered/Resolved]
  - Eyelid ptosis [Recovering/Resolving]
  - Fatigue [Recovering/Resolving]
  - Off label use [Unknown]
